FAERS Safety Report 5911357-4 (Version None)
Quarter: 2008Q4

REPORT INFORMATION
  Report Type: 
  Country: None (occurrence: None)
  Receive Date: 20081007
  Receipt Date: 20080925
  Transmission Date: 20090506
  Serious: Yes (Hospitalization, Other)
  Sender: FDA-Public Use
  Company Number: US-PFIZER INC-2008064813

PATIENT
  Sex: Female

DRUGS (13)
  1. REVATIO [Suspect]
     Indication: PULMONARY ARTERIAL HYPERTENSION
     Route: 048
     Dates: start: 20041001
  2. OXCARBAZEPINE [Interacting]
     Indication: BIPOLAR DISORDER
     Dosage: DAILY DOSE:900MG
  3. QUETIAPINE FUMARATE [Interacting]
     Indication: BIPOLAR DISORDER
  4. LAMOTRIGINE [Interacting]
     Indication: BIPOLAR DISORDER
     Route: 048
  5. ALL OTHER THERAPEUTIC PRODUCTS [Suspect]
  6. VITAMIN B-12 [Concomitant]
     Route: 030
  7. MULTI-VITAMINS [Concomitant]
     Route: 048
  8. DILTIAZEM HCL [Concomitant]
     Route: 048
  9. WARFARIN SODIUM [Concomitant]
     Route: 048
  10. LEVOTHYROXINE SODIUM [Concomitant]
     Route: 048
  11. DIVALPROEX SODIUM [Concomitant]
     Route: 048
  12. ONDANSETRON [Concomitant]
     Indication: NAUSEA
  13. MIRALAX [Concomitant]
     Indication: CONSTIPATION

REACTIONS (8)
  - ATAXIA [None]
  - COGNITIVE DISORDER [None]
  - DIPLOPIA [None]
  - DRUG INTERACTION [None]
  - EYELID PTOSIS [None]
  - MIGRAINE [None]
  - NYSTAGMUS [None]
  - VISUAL FIELD DEFECT [None]
